FAERS Safety Report 16658119 (Version 3)
Quarter: 2019Q3

REPORT INFORMATION
  Report Type: Report from Study
  Country: None (occurrence: US)
  Receive Date: 20190801
  Receipt Date: 20190918
  Transmission Date: 20191004
  Serious: Yes (Other)
  Sender: FDA-Public Use
  Company Number: US-ABBVIE-19K-163-2874483-00

PATIENT
  Sex: Female

DRUGS (5)
  1. DEPAKOTE [Suspect]
     Active Substance: DIVALPROEX SODIUM
     Indication: EPILEPSY
     Dosage: DEPAKOTE SPRINKLES
     Route: 065
     Dates: start: 201909
  2. DILANTIN [Concomitant]
     Active Substance: PHENYTOIN
     Indication: EPILEPSY
  3. DEPAKOTE [Suspect]
     Active Substance: DIVALPROEX SODIUM
     Indication: EPILEPSY
     Route: 048
     Dates: start: 2000, end: 2000
  4. DEPAKENE [Suspect]
     Active Substance: VALPROIC ACID
     Indication: EPILEPSY
     Route: 065
  5. DEPAKENE [Suspect]
     Active Substance: VALPROIC ACID
     Route: 065

REACTIONS (9)
  - Impaired driving ability [Unknown]
  - Balance disorder [Unknown]
  - Generalised tonic-clonic seizure [Recovered/Resolved]
  - Adverse drug reaction [Unknown]
  - Decreased appetite [Unknown]
  - Vomiting [Recovered/Resolved]
  - Diarrhoea [Recovered/Resolved]
  - Drug hypersensitivity [Unknown]
  - Weight decreased [Recovering/Resolving]

NARRATIVE: CASE EVENT DATE: 2000
